FAERS Safety Report 10764333 (Version 1)
Quarter: 2015Q1

REPORT INFORMATION
  Report Type: Spontaneous
  Country: GB (occurrence: GB)
  Receive Date: 20150205
  Receipt Date: 20150205
  Transmission Date: 20150721
  Serious: Yes (Other)
  Sender: FDA-Public Use
  Company Number: GB-CIPLA LTD.-2015GB00877

PATIENT

DRUGS (8)
  1. CLOBAZAM [Concomitant]
     Active Substance: CLOBAZAM
     Dosage: 7 ML, BID
     Route: 065
  2. EPILIM [Concomitant]
     Active Substance: VALPROATE SODIUM
     Dosage: 6 ML, BID (200MG/5ML)
     Route: 065
  3. LAMOTRIGINE. [Suspect]
     Active Substance: LAMOTRIGINE
     Dosage: 10 MG, BID
     Dates: start: 2014, end: 2014
  4. LAMOTRIGINE. [Suspect]
     Active Substance: LAMOTRIGINE
     Dosage: 20 MG, BID
     Dates: start: 2014, end: 2014
  5. MELATONIN [Concomitant]
     Active Substance: MELATONIN
     Route: 065
  6. KEPPRA [Concomitant]
     Active Substance: LEVETIRACETAM
     Dosage: 4 ML, BID (100 MG/ML)
     Route: 065
  7. LAMOTRIGINE. [Suspect]
     Active Substance: LAMOTRIGINE
     Dosage: 10 MG, QD
     Dates: start: 2014, end: 20141203
  8. LAMOTRIGINE. [Suspect]
     Active Substance: LAMOTRIGINE
     Dosage: 80 MG, DAILY
     Dates: start: 201402

REACTIONS (6)
  - Psychomotor hyperactivity [Unknown]
  - Gait disturbance [Unknown]
  - Insomnia [Recovered/Resolved]
  - Seizure [Unknown]
  - Aggression [Unknown]
  - Tremor [Unknown]

NARRATIVE: CASE EVENT DATE: 2014
